FAERS Safety Report 5404342-2 (Version None)
Quarter: 2007Q3

REPORT INFORMATION
  Report Type: 
  Country: None (occurrence: None)
  Receive Date: 20070711
  Receipt Date: 20070319
  Transmission Date: 20080115
  Serious: Yes (Other)
  Sender: FDA-Public Use
  Company Number: 246770

PATIENT
  Age: 56 Year
  Sex: Female
  Weight: 107.5 kg

DRUGS (18)
  1. ACTIVELLA [Suspect]
     Indication: MENOPAUSAL SYMPTOMS
     Dosage: 1 TAB, ORAL
     Route: 048
     Dates: start: 20020924, end: 20041001
  2. PROVERA [Suspect]
     Indication: POSTMENOPAUSAL HAEMORRHAGE
     Dosage: 10 MG
     Dates: start: 20000728, end: 20000805
  3. MEDROXYPROGESTERONE [Suspect]
     Indication: POSTMENOPAUSAL HAEMORRHAGE
     Dosage: 10 MG
     Dates: start: 20000317, end: 20010801
  4. PREMPHASE (PREMARIN;CYCRIN 14/14) [Suspect]
     Indication: MENOPAUSAL SYMPTOMS
     Dosage: 0.625 MG / 5 MG
     Dates: start: 20010807, end: 20020901
  5. ALESSE (ETHINYESTRADIOL, LEVONORGESTREL) [Concomitant]
  6. ESTROGENS SOL/INJ [Concomitant]
  7. FUROSEMIDE [Concomitant]
  8. LANOXIN [Concomitant]
  9. ACTOS [Concomitant]
  10. CELEBREX [Concomitant]
  11. HYZAAR [Concomitant]
  12. GLUCOPHAGE [Concomitant]
  13. ZOLOFT [Concomitant]
  14. ASPIRIN [Concomitant]
  15. LEXAPRO [Concomitant]
  16. ENALAPRIL (ENALAPRIL) [Concomitant]
  17. POTASSIUM CHLORIDE [Concomitant]
  18. CALCIUM (CALCIUM) [Concomitant]

REACTIONS (1)
  - BREAST CANCER [None]
